FAERS Safety Report 8219044-7 (Version None)
Quarter: 2012Q1

REPORT INFORMATION
  Report Type: 
  Country: None (occurrence: None)
  Receive Date: 20120319
  Receipt Date: 20120315
  Transmission Date: 20120608
  Serious: Yes (Other)
  Sender: FDA-Public Use
  Company Number: US-PFIZER INC-2012069520

PATIENT
  Sex: Female
  Weight: 54 kg

DRUGS (2)
  1. PROTONIX [Suspect]
     Indication: GASTROOESOPHAGEAL REFLUX DISEASE
     Dosage: 40 MG, DAILY
     Dates: start: 20050101, end: 20110101
  2. PROTONIX [Suspect]
     Dosage: 40 MG, DAILY
     Dates: start: 20120101

REACTIONS (1)
  - DERMATOMYOSITIS [None]
